FAERS Safety Report 7917496-0 (Version None)
Quarter: 2011Q4

REPORT INFORMATION
  Report Type: 
  Country: None (occurrence: None)
  Receive Date: 20111116
  Receipt Date: 20111101
  Transmission Date: 20120403
  Serious: Yes (Hospitalization)
  Sender: FDA-Public Use
  Company Number: JP-ROCHE-735387

PATIENT
  Sex: Female
  Weight: 50 kg

DRUGS (26)
  1. ACTEMRA [Suspect]
     Route: 041
     Dates: start: 20080908, end: 20080908
  2. PREDNISOLONE [Suspect]
     Dosage: FORM: PERORAL AGENT
     Route: 048
     Dates: start: 20081006, end: 20081109
  3. METHOTREXATE [Suspect]
     Indication: RHEUMATOID ARTHRITIS
     Dosage: FORM: PERORAL AGENT
     Route: 048
  4. SULFAMETHOXAZOLE AND TRIMETHOPRIM [Concomitant]
     Route: 048
  5. PRECIPITATED CALCIUM CARBONATE [Concomitant]
     Dosage: FORM: PERORAL AGENT.
     Route: 048
  6. DORIPENEM MONOHYDRATE [Concomitant]
  7. ACTEMRA [Suspect]
     Route: 041
     Dates: start: 20081110, end: 20081110
  8. ACTEMRA [Suspect]
     Route: 041
  9. PREDNISOLONE [Suspect]
     Dosage: FORM: PERORAL AGENT
     Route: 048
     Dates: start: 20080707, end: 20080810
  10. PREDNISOLONE [Suspect]
     Dosage: FORM: PERORAL AGENT
     Route: 048
     Dates: start: 20080908, end: 20081005
  11. ONEALFA [Concomitant]
     Route: 048
  12. DICLOFENAC SODIUM [Concomitant]
     Route: 048
  13. ACTEMRA [Suspect]
     Route: 041
     Dates: start: 20081006, end: 20081006
  14. PREDNISOLONE [Suspect]
     Dosage: FORM: PERORAL AGENT
     Route: 048
     Dates: start: 20080811, end: 20080907
  15. PREDNISOLONE [Suspect]
     Dosage: FORM: PERORAL AGENT
     Route: 048
  16. MUCOSTA [Concomitant]
     Route: 048
  17. ACTEMRA [Suspect]
     Route: 041
     Dates: start: 20080811, end: 20080811
  18. FERROUS CITRATE [Concomitant]
     Route: 048
  19. FOSAMAX [Concomitant]
     Route: 048
  20. PREDNISOLONE [Suspect]
     Indication: RHEUMATOID ARTHRITIS
     Dosage: FORM: PERORAL AGENT
     Route: 048
  21. PROGRAF [Concomitant]
     Dosage: FORM: PERORAL AGENT.
     Route: 048
  22. FOLIC ACID [Concomitant]
     Dosage: FORM: PERORAL AGENT.
     Route: 048
  23. ACTEMRA [Suspect]
     Route: 041
     Dates: start: 20081208, end: 20090101
  24. PREDNISOLONE [Suspect]
     Dosage: FORM: PERORAL AGENT
     Route: 048
     Dates: start: 20081110, end: 20081210
  25. ACTEMRA [Suspect]
     Indication: RHEUMATOID ARTHRITIS
     Route: 041
     Dates: start: 20080707, end: 20080707
  26. RABEPRAZOLE SODIUM [Concomitant]
     Route: 048

REACTIONS (4)
  - OVARIAN NEOPLASM [None]
  - ASCITES [None]
  - ORAL HERPES [None]
  - CAMPYLOBACTER GASTROENTERITIS [None]
